FAERS Safety Report 10352707 (Version 1)
Quarter: 2014Q3

REPORT INFORMATION
  Report Type: Spontaneous
  Country: US (occurrence: US)
  Receive Date: 20140730
  Receipt Date: 20140730
  Transmission Date: 20150326
  Serious: No
  Sender: FDA-Public Use
  Company Number: US-ABBVIE-13P-163-1140062-00

PATIENT
  Sex: Female
  Weight: 62.2 kg

DRUGS (1)
  1. LEVOTHYROXINE [Suspect]
     Active Substance: LEVOTHYROXINE
     Indication: HYPOTHYROIDISM
     Dosage: TOOK FOR A FEW DAYS
     Route: 048

REACTIONS (1)
  - Feeling abnormal [Not Recovered/Not Resolved]
